FAERS Safety Report 4874627-7 (Version None)
Quarter: 2006Q1

REPORT INFORMATION
  Report Type: 
  Country: None (occurrence: None)
  Receive Date: 20060106
  Receipt Date: 20050302
  Transmission Date: 20060701
  Serious: Yes (Hospitalization, Disabling)
  Sender: FDA-Public Use
  Company Number: US-MERCK-0503USA00643

PATIENT
  Age: 63 Year
  Sex: Male
  Weight: 91 kg

DRUGS (2)
  1. VIOXX [Suspect]
     Indication: SHOULDER PAIN
     Route: 048
     Dates: start: 19990101, end: 20030101
  2. ASPIRIN [Concomitant]
     Route: 065

REACTIONS (6)
  - CHEST PAIN [None]
  - EMOTIONAL DISORDER [None]
  - LIMB INJURY [None]
  - MYOCARDIAL INFARCTION [None]
  - OVERDOSE [None]
  - POLYTRAUMATISM [None]
